FAERS Safety Report 10156752 (Version 1)
Quarter: 2014Q2

REPORT INFORMATION
  Report Type: Report from Study
  Country: US (occurrence: US)
  Receive Date: 20140507
  Receipt Date: 20140507
  Transmission Date: 20141212
  Serious: Yes (Hospitalization)
  Sender: FDA-Public Use
  Company Number: US-UCBSA-120337

PATIENT
  Age: 64 Year
  Sex: Male
  Weight: 84.54 kg

DRUGS (18)
  1. CIMZIA [Suspect]
     Indication: CROHN^S DISEASE
     Dosage: 400 MG
     Route: 058
     Dates: start: 20091016, end: 20100505
  2. CIMZIA [Suspect]
     Indication: CROHN^S DISEASE
     Dosage: 200 MG
     Route: 058
     Dates: start: 20100609, end: 201104
  3. CIMZIA [Suspect]
     Indication: CROHN^S DISEASE
     Route: 058
     Dates: start: 201105, end: 20110610
  4. CIMZIA [Suspect]
     Indication: CROHN^S DISEASE
     Route: 058
     Dates: start: 20110624
  5. VITAMIN B 12 SHOTS [Concomitant]
     Indication: CROHN^S DISEASE
  6. VITAMIN D [Concomitant]
     Indication: CROHN^S DISEASE
  7. POTASSIUM [Concomitant]
     Indication: CROHN^S DISEASE
  8. ACETAMINOPHEN [Concomitant]
     Indication: CROHN^S DISEASE
  9. IMODIUM AD [Concomitant]
     Indication: CROHN^S DISEASE
  10. MULTIVITAMIN [Concomitant]
     Indication: CROHN^S DISEASE
  11. CALCIUM/VITAMIN D [Concomitant]
     Indication: CROHN^S DISEASE
  12. FOLIC ACID [Concomitant]
     Indication: CROHN^S DISEASE
  13. KLOR-CON M20 [Concomitant]
     Indication: CROHN^S DISEASE
  14. LOMOTIL [Concomitant]
     Indication: CROHN^S DISEASE
  15. 6-MP [Concomitant]
     Indication: CROHN^S DISEASE
     Dates: start: 20040624
  16. PREDNISONE [Concomitant]
     Indication: CROHN^S DISEASE
     Dates: start: 2001, end: 20011016
  17. PREDNISONE [Concomitant]
     Indication: CROHN^S DISEASE
     Dates: start: 20130827
  18. BUDESONIDE [Concomitant]
     Indication: CROHN^S DISEASE
     Dates: start: 20110504

REACTIONS (1)
  - Cellulitis [Recovering/Resolving]
